FAERS Safety Report 21793811 (Version 1)
Quarter: 2022Q4

REPORT INFORMATION
  Report Type: Spontaneous
  Country: US (occurrence: None)
  Receive Date: 20221228
  Receipt Date: 20221228
  Transmission Date: 20230113
  Serious: Yes (Hospitalization)
  Sender: FDA-Public Use
  Company Number: None

PATIENT
  Age: 42 Year
  Sex: Male
  Weight: 145 kg

DRUGS (8)
  1. TECARTUS [Suspect]
     Active Substance: BREXUCABTAGENE AUTOLEUCEL
     Indication: Acute lymphocytic leukaemia
     Dosage: FREQUENCY : ONCE;?
     Route: 041
     Dates: start: 20221213
  2. ACTEMRA [Concomitant]
     Active Substance: TOCILIZUMAB
     Dates: end: 20221221
  3. dexAMETHasone (Decadron) injection [Concomitant]
     Dates: end: 20221224
  4. anakinra (Kineret) [Concomitant]
     Dates: end: 20221223
  5. acyclovir (Zovirax) [Concomitant]
     Dates: start: 20221213, end: 20221228
  6. levETIRAcetam (Keppra [Concomitant]
     Dates: start: 20221213, end: 20221228
  7. cefepime (Maxipime [Concomitant]
     Dates: end: 20221220
  8. piperacillin-tazobactam (Zosyn [Concomitant]
     Dates: end: 20221224

REACTIONS (2)
  - Cytokine release syndrome [None]
  - Immune effector cell-associated neurotoxicity syndrome [None]

NARRATIVE: CASE EVENT DATE: 20221213
